FAERS Safety Report 8536036-9 (Version None)
Quarter: 2012Q3

REPORT INFORMATION
  Report Type: 
  Country: None (occurrence: None)
  Receive Date: 20120725
  Receipt Date: 20120716
  Transmission Date: 20120928
  Serious: Yes (Hospitalization, Other)
  Sender: FDA-Public Use
  Company Number: US-ROXANE LABORATORIES, INC.-2012-RO-01562RO

PATIENT
  Age: 68 Year
  Sex: Female

DRUGS (23)
  1. PREDNISONE [Suspect]
     Indication: MULTIPLE MYELOMA
     Dosage: 10 MG
     Route: 048
     Dates: start: 20110925, end: 20120619
  2. OXYCONTIN [Concomitant]
     Dosage: 80 MG
  3. BUSPAR [Concomitant]
     Dosage: 60 MG
  4. CELEBREX [Concomitant]
  5. NEURONTIN [Concomitant]
     Dosage: 1200 MG
  6. GLUCOTROL [Concomitant]
     Dosage: 5 MG
  7. WELLBUTRIN [Concomitant]
     Dosage: 150 MG
  8. LASIX [Concomitant]
     Dosage: 20 MG
  9. PRILOSEC [Concomitant]
     Dosage: 20 MG
  10. INSULIN [Concomitant]
  11. PREDNISONE [Suspect]
     Dosage: 5 MG
     Route: 048
     Dates: start: 20120620
  12. NEXIUM [Concomitant]
  13. OXYCODONE HCL [Concomitant]
  14. M.V.I. [Concomitant]
  15. IRON [Concomitant]
  16. LUVOX [Concomitant]
     Dosage: 150 MG
  17. COUMADIN [Concomitant]
  18. LISINOPRIL [Concomitant]
     Dosage: 5 MG
  19. K+ [Concomitant]
  20. ATIVAN [Concomitant]
  21. ENTOCORT EC [Concomitant]
  22. SENOKOT [Concomitant]
  23. VITAMIN D [Concomitant]

REACTIONS (8)
  - FALL [None]
  - HYPOXIA [None]
  - ARTHRALGIA [None]
  - AGITATION [None]
  - DELIRIUM [None]
  - PULMONARY EMBOLISM [None]
  - PSYCHOTIC DISORDER [None]
  - PAIN [None]
